FAERS Safety Report 5740714-4 (Version None)
Quarter: 2008Q2

REPORT INFORMATION
  Report Type: 
  Country: None (occurrence: None)
  Receive Date: 20080516
  Receipt Date: 20080506
  Transmission Date: 20081010
  Serious: Yes (Other)
  Sender: FDA-Public Use
  Company Number: US-PFIZER INC-2008039538

PATIENT
  Sex: Female
  Weight: 62.727 kg

DRUGS (4)
  1. CELEBREX [Suspect]
     Indication: SPINAL COLUMN STENOSIS
     Dosage: DAILY DOSE:300MG
     Dates: start: 20080504, end: 20080506
  2. CELEBREX [Suspect]
     Indication: PAIN
  3. ENALAPRIL MALEATE [Concomitant]
  4. DIURETICS [Concomitant]

REACTIONS (4)
  - DYSPHAGIA [None]
  - PAIN [None]
  - PHARYNGEAL OEDEMA [None]
  - SNORING [None]
